FAERS Safety Report 9353631 (Version 1)
Quarter: 2013Q2

REPORT INFORMATION
  Report Type: Spontaneous
  Country: US (occurrence: None)
  Receive Date: 20130617
  Receipt Date: 20130617
  Transmission Date: 20140414
  Serious: No
  Sender: FDA-Public Use
  Company Number: None

PATIENT
  Age: 43 Year
  Sex: 0
  Weight: 77.11 kg

DRUGS (1)
  1. FINASTERIDE [Suspect]
     Indication: ANDROGENETIC ALOPECIA
     Dates: start: 20130301, end: 20130613

REACTIONS (2)
  - Drug ineffective [None]
  - Suspected counterfeit product [None]
